FAERS Safety Report 20169611 (Version 1)
Quarter: 2021Q4

REPORT INFORMATION
  Report Type: Spontaneous
  Country: RO (occurrence: None)
  Receive Date: 20211210
  Receipt Date: 20211210
  Transmission Date: 20220304
  Serious: Yes (Other)
  Sender: FDA-Public Use
  Company Number: 2021A856017

PATIENT
  Age: 71 Year
  Sex: Female

DRUGS (6)
  1. SYMBICORT [Suspect]
     Active Substance: BUDESONIDE\FORMOTEROL FUMARATE DIHYDRATE
     Indication: Asthma
     Dosage: 320/9 ??G 2X1 PUFF / DAY
     Route: 055
     Dates: start: 2020
  2. FASENRA [Concomitant]
     Active Substance: BENRALIZUMAB
     Route: 055
     Dates: start: 20200618
  3. TIOTROPIUM [Concomitant]
     Active Substance: TIOTROPIUM
     Dosage: 18 ??G 1X1 PUFF / DAY
  4. MONTELUKAST [Concomitant]
     Active Substance: MONTELUKAST SODIUM
  5. AZELASTINE HYDROCHLORIDE\FLUTICASONE PROPIONATE [Concomitant]
     Active Substance: AZELASTINE HYDROCHLORIDE\FLUTICASONE PROPIONATE
     Dosage: 137/50 ??G 2X1 PUFF / DAY
     Route: 045
  6. RUPATADINE [Concomitant]
     Active Substance: RUPATADINE

REACTIONS (7)
  - Asthma [Recovered/Resolved]
  - Wheezing [Recovered/Resolved]
  - Dyspnoea [Recovered/Resolved]
  - Productive cough [Recovered/Resolved]
  - Eosinophil count increased [Unknown]
  - General physical health deterioration [Unknown]
  - Erythema [Recovered/Resolved]

NARRATIVE: CASE EVENT DATE: 20200101
